FAERS Safety Report 5195753-1 (Version None)
Quarter: 2007Q1

REPORT INFORMATION
  Report Type: 
  Country: None (occurrence: None)
  Receive Date: 20070102
  Receipt Date: 20061220
  Transmission Date: 20070707
  Serious: Yes (Death, Hospitalization)
  Sender: FDA-Public Use
  Company Number: FR-ROCHE-476111

PATIENT
  Age: 74 Year
  Sex: Female

DRUGS (6)
  1. XELODA [Suspect]
     Indication: DRUG USE FOR UNKNOWN INDICATION
     Route: 048
     Dates: start: 20061005
  2. DEPAMIDE [Concomitant]
  3. RIVOTRIL [Concomitant]
  4. DURAGESIC-100 [Concomitant]
  5. FUROSEMIDE [Concomitant]
  6. ACTRAPID [Concomitant]

REACTIONS (3)
  - LEUKOPENIA [None]
  - RESPIRATORY ARREST [None]
  - THROMBOCYTOPENIA [None]
